FAERS Safety Report 11804771 (Version 1)
Quarter: 2015Q4

REPORT INFORMATION
  Report Type: Spontaneous
  Country: DE (occurrence: DE)
  Receive Date: 20151205
  Receipt Date: 20151205
  Transmission Date: 20160305
  Serious: Yes (Other)
  Sender: FDA-Public Use
  Company Number: DE-SUN PHARMACEUTICAL INDUSTRIES LTD-2015RR-107183

PATIENT

DRUGS (5)
  1. ACTAPRID [Concomitant]
     Indication: GESTATIONAL DIABETES
     Dosage: DURING GESTATIONAL WEEKS 34-38.2
     Route: 058
     Dates: start: 20150625, end: 20150725
  2. FEMIBION [Concomitant]
     Active Substance: VITAMINS
     Indication: PROPHYLAXIS OF NEURAL TUBE DEFECT
     Dosage: DURING GESTATIONAL WEEKS 6.2-38.2
     Route: 048
     Dates: start: 20141213, end: 20150725
  3. VENLAFAXINE [Suspect]
     Active Substance: VENLAFAXINE HYDROCHLORIDE
     Indication: DEPRESSION
     Dosage: 225 MG, DAILY, DOSE DECREASED TO 150 MG/D FROM GW 31+4
     Route: 048
     Dates: start: 20141030, end: 20150725
  4. CYTOTEC [Concomitant]
     Active Substance: MISOPROSTOL
     Indication: LABOUR INDUCTION
     Dosage: 400 ?G, GESTATIONAL WEEKS 38.1-38.2
     Route: 048
     Dates: start: 20150724, end: 20150725
  5. PROPTAPHANE [Concomitant]
     Indication: GESTATIONAL DIABETES
     Dosage: 3 IE/D, DURING GESTATIONAL WEEKS 30.6-38.2
     Route: 058
     Dates: start: 20150603, end: 20150725

REACTIONS (4)
  - Gestational diabetes [Recovered/Resolved]
  - Exposure during pregnancy [None]
  - Labour induction [None]
  - Foetal death [Recovered/Resolved]
